FAERS Safety Report 5110305-7 (Version None)
Quarter: 2006Q3

REPORT INFORMATION
  Report Type: 
  Country: None (occurrence: None)
  Receive Date: 20060921
  Receipt Date: 20060913
  Transmission Date: 20061208
  Serious: Yes (Hospitalization)
  Sender: FDA-Public Use
  Company Number: US-ROCHE-463411

PATIENT
  Age: 14 Year
  Sex: Male
  Weight: 65.3 kg

DRUGS (1)
  1. ACCUTANE [Suspect]
     Indication: ACNE
     Dosage: STRENGHTS REPORTED AS 20 MG AND 40 MG. 40 MG IN THE MORNING, 60 MG IN THE AFTERNOON.
     Route: 048
     Dates: start: 20060715

REACTIONS (4)
  - HAND FRACTURE [None]
  - JOINT DISLOCATION [None]
  - ROAD TRAFFIC ACCIDENT [None]
  - UPPER LIMB FRACTURE [None]
